FAERS Safety Report 8927067 (Version 3)
Quarter: 2012Q4

REPORT INFORMATION
  Report Type: 
  Country: TR (occurrence: TR)
  Receive Date: 20121127
  Receipt Date: 20121213
  Transmission Date: 20130627
  Serious: Yes (Other)
  Sender: FDA-Public Use
  Company Number: TR-BAYER-2012-121905

PATIENT
  Age: 42 Year
  Sex: Male
  Weight: 74 kg

DRUGS (4)
  1. LEVITRA [Suspect]
     Indication: ERECTILE DYSFUNCTION
     Dosage: 20 mg, QD
     Route: 048
     Dates: start: 20121117, end: 20121117
  2. INSULIN [Concomitant]
     Indication: DIABETES
  3. LANTUS [Concomitant]
  4. APIDRA [Concomitant]

REACTIONS (4)
  - Haematemesis [Recovering/Resolving]
  - Dyspepsia [Recovering/Resolving]
  - Oesophageal pain [Recovering/Resolving]
  - Mouth haemorrhage [Recovered/Resolved]
